FAERS Safety Report 5165968-7 (Version None)
Quarter: 2006Q4

REPORT INFORMATION
  Report Type: 
  Country: None (occurrence: None)
  Receive Date: 20061206
  Receipt Date: 20061129
  Transmission Date: 20070319
  Serious: Yes (Hospitalization)
  Sender: FDA-Public Use
  Company Number: US-SANOFI-SYNTHELABO-F01200602416

PATIENT
  Sex: Female

DRUGS (5)
  1. CLONIDINE [Concomitant]
     Dates: start: 20061109
  2. DIOVAN HCT [Concomitant]
     Dates: start: 20010615
  3. BEVACIZUMAB [Suspect]
     Route: 042
  4. CAPECITABINE [Suspect]
     Dosage: OR 2 WEEKS, Q3W
     Route: 048
  5. OXALIPLATIN [Suspect]
     Indication: COLON CANCER
     Route: 042

REACTIONS (6)
  - BLOOD PRESSURE INCREASED [None]
  - CONFUSIONAL STATE [None]
  - HEADACHE [None]
  - LOSS OF CONSCIOUSNESS [None]
  - NAUSEA [None]
  - SYNCOPE [None]
